FAERS Safety Report 7753807 (Version 6)
Quarter: 2013Q2

REPORT INFORMATION
  Report Type: Report from Study
  Country: CA (occurrence: CA)
  Receive Date: 20110110
  Receipt Date: 20130405
  Transmission Date: 20140414
  Serious: Yes (Life-Threatening, Other)
  Sender: FDA-Public Use
  Company Number: CA-ROCHE-751330

PATIENT
  Age: 71 Year
  Sex: Female

DRUGS (11)
  1. ACTEMRA [Suspect]
     Indication: RHEUMATOID ARTHRITIS
     Dosage: FREQUENCY: 4 WEEKSFORM: INFUSION.
     Route: 042
  2. ACTEMRA [Suspect]
     Route: 042
  3. ACTEMRA [Suspect]
     Route: 042
  4. ACTEMRA [Suspect]
     Route: 042
     Dates: start: 20120131, end: 20130311
  5. ARAVA [Concomitant]
  6. CELEBREX [Concomitant]
  7. AVALIDE [Concomitant]
     Indication: BLOOD PRESSURE
  8. PREDNISONE [Concomitant]
     Indication: RHEUMATOID ARTHRITIS
  9. METHOTREXATE [Concomitant]
  10. ASA [Concomitant]
  11. RITUXAN [Concomitant]
     Route: 065

REACTIONS (7)
  - Atrial fibrillation [Not Recovered/Not Resolved]
  - Wound [Recovering/Resolving]
  - Localised infection [Recovering/Resolving]
  - Pallor [Unknown]
  - Weight increased [Not Recovered/Not Resolved]
  - Hypotension [Unknown]
  - Urinary tract infection [Not Recovered/Not Resolved]
